FAERS Safety Report 8598997-1 (Version None)
Quarter: 2012Q3

REPORT INFORMATION
  Report Type: 
  Country: None (occurrence: None)
  Receive Date: 20120806
  Receipt Date: 20120806
  Transmission Date: 20120928
  Serious: Yes (Disabling, Other)
  Sender: FDA-Public Use
  Company Number: None

PATIENT
  Age: 59 Year
  Sex: Female
  Weight: 48.9885 kg

DRUGS (2)
  1. LEVAQUIN [Suspect]
     Indication: EAR INFECTION
     Dosage: ONE PILL DAILY PO
     Route: 048
     Dates: start: 20120213, end: 20120213
  2. LEVAQUIN [Suspect]
     Indication: SINUS DISORDER
     Dosage: ONE PILL DAILY PO
     Route: 048
     Dates: start: 20120213, end: 20120213

REACTIONS (26)
  - THROAT TIGHTNESS [None]
  - ASTHENIA [None]
  - HIATUS HERNIA [None]
  - MUSCULAR WEAKNESS [None]
  - IMPAIRED WORK ABILITY [None]
  - HEADACHE [None]
  - ORAL DISCOMFORT [None]
  - CHEST DISCOMFORT [None]
  - GASTRITIS [None]
  - NAUSEA [None]
  - DRUG EFFECT DECREASED [None]
  - GLOSSODYNIA [None]
  - THROAT IRRITATION [None]
  - CYSTITIS [None]
  - CANDIDIASIS [None]
  - MYALGIA [None]
  - FEELING OF BODY TEMPERATURE CHANGE [None]
  - RASH [None]
  - VISION BLURRED [None]
  - PYREXIA [None]
  - SWOLLEN TONGUE [None]
  - OESOPHAGITIS [None]
  - TENDONITIS [None]
  - WEIGHT DECREASED [None]
  - VOMITING [None]
  - EMOTIONAL DISORDER [None]
